FAERS Safety Report 13498900 (Version 1)
Quarter: 2017Q2

REPORT INFORMATION
  Report Type: Spontaneous
  Country: US (occurrence: US)
  Receive Date: 20170430
  Receipt Date: 20170430
  Transmission Date: 20170830
  Serious: Yes (Hospitalization)
  Sender: FDA-Public Use
  Company Number: None

PATIENT
  Age: 47 Year
  Sex: Male
  Weight: 85.7 kg

DRUGS (4)
  1. OMEPRAZOLE. [Concomitant]
     Active Substance: OMEPRAZOLE
  2. AUGMENTIN [Concomitant]
     Active Substance: AMOXICILLIN\CLAVULANATE POTASSIUM
  3. AZITHROMYCIN ANHYDROUS. [Concomitant]
     Active Substance: AZITHROMYCIN ANHYDROUS
  4. COSENTYX [Suspect]
     Active Substance: SECUKINUMAB
     Indication: PSORIASIS
     Dosage: ?          OTHER FREQUENCY:MONTHLY;?
     Route: 058
     Dates: start: 20161125, end: 20170420

REACTIONS (12)
  - Intestinal ischaemia [None]
  - Crohn^s disease [None]
  - Haemangioma of liver [None]
  - Abdominal distension [None]
  - Haematochezia [None]
  - Flatulence [None]
  - Vertebral lesion [None]
  - Pyrexia [None]
  - Abdominal pain [None]
  - Muscle spasms [None]
  - Diarrhoea [None]
  - Mucous stools [None]

NARRATIVE: CASE EVENT DATE: 20170420
